FAERS Safety Report 11502551 (Version 1)
Quarter: 2015Q3

REPORT INFORMATION
  Report Type: Spontaneous
  Country: US (occurrence: US)
  Receive Date: 20150914
  Receipt Date: 20150914
  Transmission Date: 20151125
  Serious: No
  Sender: FDA-Public Use
  Company Number: US-ASTELLAS-2015US022069

PATIENT
  Age: 83 Year
  Sex: Male

DRUGS (2)
  1. XTANDI [Suspect]
     Active Substance: ENZALUTAMIDE
     Indication: PROSTATE CANCER
     Dosage: 160 MG, UNK
     Route: 065
     Dates: start: 201406
  2. XTANDI [Suspect]
     Active Substance: ENZALUTAMIDE
     Dosage: 1 DF, (1 CAPSULE ONLY)
     Route: 065
     Dates: end: 20150422

REACTIONS (5)
  - Underdose [Unknown]
  - Dysphagia [Unknown]
  - Choking [Unknown]
  - Oesophageal disorder [Unknown]
  - Product size issue [Unknown]

NARRATIVE: CASE EVENT DATE: 20150622
